FAERS Safety Report 16770373 (Version 1)
Quarter: 2019Q3

REPORT INFORMATION
  Report Type: Spontaneous
  Country: FR (occurrence: FR)
  Receive Date: 20190904
  Receipt Date: 20190904
  Transmission Date: 20191005
  Serious: Yes (Other)
  Sender: FDA-Public Use
  Company Number: FR-SA-2018SA389648

PATIENT
  Age: 26 Year
  Sex: Female

DRUGS (1)
  1. AUBAGIO [Suspect]
     Active Substance: TERIFLUNOMIDE
     Indication: MULTIPLE SCLEROSIS
     Dosage: UNK
     Route: 048
     Dates: start: 2016, end: 20181214

REACTIONS (6)
  - Pre-eclampsia [Recovering/Resolving]
  - Dyspnoea [Recovering/Resolving]
  - Peripartum cardiomyopathy [Recovering/Resolving]
  - Exposure during pregnancy [Unknown]
  - Pulmonary oedema [Recovering/Resolving]
  - Amenorrhoea [Unknown]

NARRATIVE: CASE EVENT DATE: 201811
